FAERS Safety Report 25974948 (Version 1)
Quarter: 2025Q4

REPORT INFORMATION
  Report Type: Spontaneous
  Country: EU (occurrence: EU)
  Receive Date: 20251029
  Receipt Date: 20251029
  Transmission Date: 20260117
  Serious: Yes (Hospitalization)
  Sender: ABBVIE
  Company Number: EU-ABBVIE-6521051

PATIENT
  Sex: Female

DRUGS (1)
  1. FOSCARBIDOPA\FOSLEVODOPA [Suspect]
     Active Substance: FOSCARBIDOPA\FOSLEVODOPA
     Indication: Product used for unknown indication
     Route: 058

REACTIONS (7)
  - Dopamine supersensitivity psychosis [Unknown]
  - Motor dysfunction [Unknown]
  - Hallucination [Unknown]
  - Behaviour disorder [Unknown]
  - Vitamin B6 deficiency [Unknown]
  - Sensorimotor disorder [Unknown]
  - Peripheral motor neuropathy [Unknown]
